FAERS Safety Report 5423301-7 (Version None)
Quarter: 2007Q3

REPORT INFORMATION
  Report Type: 
  Country: None (occurrence: None)
  Receive Date: 20070823
  Receipt Date: 20070820
  Transmission Date: 20080115
  Serious: Yes (Hospitalization)
  Sender: FDA-Public Use
  Company Number: PHRM2007FR02045

PATIENT
  Age: 74 Year
  Sex: Female

DRUGS (4)
  1. ESIDRIX [Suspect]
     Dosage: 25 MG, QD
     Route: 048
  2. CIBACENE [Suspect]
     Dosage: 10 MG, QD
     Route: 048
     Dates: start: 20060701
  3. CORTANCYL [Suspect]
     Dosage: 5 MG, QOD
     Route: 048
  4. TAHOR [Suspect]
     Dosage: 10 MG, QD
     Route: 048

REACTIONS (3)
  - BRONCHITIS [None]
  - COUGH [None]
  - INTERSTITIAL LUNG DISEASE [None]
